FAERS Safety Report 20178620 (Version 1)
Quarter: 2021Q4

REPORT INFORMATION
  Report Type: Report from Study
  Country: US (occurrence: US)
  Receive Date: 20211214
  Receipt Date: 20211214
  Transmission Date: 20220303
  Serious: Yes (Death, Other)
  Sender: FDA-Public Use
  Company Number: US-ACADIA PHARMACEUTICALS INC.-ACA-2021-PIM-004080

PATIENT
  Sex: Female

DRUGS (16)
  1. NUPLAZID [Suspect]
     Active Substance: PIMAVANSERIN TARTRATE
     Indication: Parkinson^s disease
     Dosage: 34 MILLIGRAM, QD
     Route: 048
     Dates: start: 20210510, end: 20211113
  2. LORAZEPAM [Concomitant]
     Active Substance: LORAZEPAM
  3. HALOPERIDOL [Concomitant]
     Active Substance: HALOPERIDOL
  4. HYOSYNE [Concomitant]
     Active Substance: HYOSCYAMINE SULFATE
  5. AMANTADINE [Concomitant]
     Active Substance: AMANTADINE
  6. TEMAZEPAM [Concomitant]
     Active Substance: TEMAZEPAM
  7. QUETIAPINE [Concomitant]
     Active Substance: QUETIAPINE
  8. OXYCODONE [Concomitant]
     Active Substance: OXYCODONE
  9. VENLAFAXINE [Concomitant]
     Active Substance: VENLAFAXINE HYDROCHLORIDE
  10. ROPINIROLE [Concomitant]
     Active Substance: ROPINIROLE
  11. LEVETIRACETAM [Concomitant]
     Active Substance: LEVETIRACETAM
  12. GABAPENTIN [Concomitant]
     Active Substance: GABAPENTIN
  13. BACLOFEN [Concomitant]
     Active Substance: BACLOFEN
  14. CARBIDOPA\LEVODOPA [Concomitant]
     Active Substance: CARBIDOPA\LEVODOPA
  15. PROMETHAZINE [Concomitant]
     Active Substance: PROMETHAZINE HYDROCHLORIDE
  16. BACTRIM [Concomitant]
     Active Substance: SULFAMETHOXAZOLE\TRIMETHOPRIM

REACTIONS (1)
  - Disease progression [Recovered/Resolved]
